FAERS Safety Report 8396677-9 (Version None)
Quarter: 2012Q1

REPORT INFORMATION
  Report Type: 
  Country: None (occurrence: None)
  Receive Date: 20120323
  Receipt Date: 20110926
  Transmission Date: 20120608
  Serious: Yes (Disabling)
  Sender: FDA-Public Use
  Company Number: 163-21880-11071277

PATIENT
  Age: 73 Year
  Sex: Female

DRUGS (2)
  1. MULTIVITAMIN [Concomitant]
  2. REVLIMID [Suspect]
     Indication: MULTIPLE MYELOMA
     Dosage: 10 MG, DAYS 1-21/28 DAY CYCLE, PO
     Route: 048
     Dates: start: 20101001, end: 20110401

REACTIONS (1)
  - MUSCULAR WEAKNESS [None]
